FAERS Safety Report 7584753-X (Version None)
Quarter: 2011Q2

REPORT INFORMATION
  Report Type: 
  Country: None (occurrence: None)
  Receive Date: 20110630
  Receipt Date: 20110620
  Transmission Date: 20111010
  Serious: Yes (Other)
  Sender: FDA-Public Use
  Company Number: PHHY2011NL39596

PATIENT
  Sex: Male
  Weight: 81.1 kg

DRUGS (9)
  1. ALISKIREN [Suspect]
     Indication: HYPERTENSION
     Dosage: 150 MG, UNK
     Route: 048
     Dates: start: 20090416, end: 20090513
  2. HYDROCHLOROTHIAZIDE [Concomitant]
     Indication: HYPERTENSION
     Dosage: 25 MG, UNK
  3. ASPIRIN [Concomitant]
     Indication: CORONARY ARTERY INSUFFICIENCY
     Dosage: UNK
     Dates: start: 20070316
  4. PRAVASTATIN [Concomitant]
     Indication: HYPERLIPIDAEMIA
     Dosage: 40 MG, UNK
  5. ALISKIREN [Suspect]
     Indication: PROTEINURIA
  6. LOSARTAN POTASSIUM [Concomitant]
     Indication: HYPERTENSION
     Dosage: 50 MG, UNK
  7. AMLODIPINE [Concomitant]
     Dosage: 5 MG, UNK
  8. APIDRA [Concomitant]
     Indication: DIABETES MELLITUS
     Dosage: UNK
     Dates: start: 20070316
  9. LANTUS [Concomitant]
     Indication: DIABETES MELLITUS
     Dosage: UNK
     Dates: start: 20070316

REACTIONS (1)
  - ICHTHYOSIS [None]
